FAERS Safety Report 8922988 (Version 1)
Quarter: 2012Q4

REPORT INFORMATION
  Report Type: 
  Country: NL (occurrence: NL)
  Receive Date: 20121123
  Receipt Date: 20121123
  Transmission Date: 20130627
  Serious: Yes (Hospitalization)
  Sender: FDA-Public Use
  Company Number: NL-JNJFOC-20121006866

PATIENT
  Sex: Male

DRUGS (5)
  1. XEPLION [Suspect]
     Indication: SCHIZOAFFECTIVE DISORDER
     Dosage: 07-SEP (unspecified year)
     Route: 030
  2. XEPLION [Suspect]
     Indication: SCHIZOAFFECTIVE DISORDER
     Dosage: 28-AUG (unspecified year)
     Route: 030
  3. XEPLION [Suspect]
     Indication: SCHIZOAFFECTIVE DISORDER
     Dosage: 24-AUG (unspecified year)
     Route: 030
  4. XEPLION [Suspect]
     Indication: SCHIZOAFFECTIVE DISORDER
     Dosage: 23-SEP (unspecified year)
     Route: 030
  5. XEPLION [Suspect]
     Indication: SCHIZOAFFECTIVE DISORDER
     Dosage: 04-OCT (unspecified year)
     Route: 030

REACTIONS (4)
  - Drug ineffective [Not Recovered/Not Resolved]
  - Blood creatinine increased [Unknown]
  - Musculoskeletal stiffness [Unknown]
  - Drug administration error [Unknown]
